FAERS Safety Report 15568334 (Version 1)
Quarter: 2018Q4

REPORT INFORMATION
  Report Type: Spontaneous
  Country: CA (occurrence: CA)
  Receive Date: 20181031
  Receipt Date: 20181031
  Transmission Date: 20190205
  Serious: Yes (Hospitalization)
  Sender: FDA-Public Use
  Company Number: CA-ASTRAZENECA-2018SF39675

PATIENT
  Age: 31 Year
  Sex: Female
  Weight: 76.2 kg

DRUGS (5)
  1. JANUMET [Concomitant]
     Active Substance: METFORMIN HYDROCHLORIDE\SITAGLIPTIN PHOSPHATE
  2. FORXIGA [Suspect]
     Active Substance: DAPAGLIFLOZIN
     Route: 048
  3. MULTIVITAMIN [Concomitant]
     Active Substance: VITAMINS
     Indication: TYPE 2 DIABETES MELLITUS
     Dosage: ONCE A DAY ADVANCE ADULTS
  4. ACETAMINOPHEN. [Concomitant]
     Active Substance: ACETAMINOPHEN
  5. GLICLAZIDE [Concomitant]
     Active Substance: GLICLAZIDE

REACTIONS (7)
  - Malaise [Unknown]
  - Sepsis [Unknown]
  - Nausea [Unknown]
  - Pyrexia [Unknown]
  - Pyelonephritis [Unknown]
  - Diabetic ketoacidosis [Unknown]
  - Abdominal pain lower [Unknown]
